FAERS Safety Report 11333842 (Version 1)
Quarter: 2015Q3

REPORT INFORMATION
  Report Type: Spontaneous
  Country: IT (occurrence: IT)
  Receive Date: 20150803
  Receipt Date: 20150803
  Transmission Date: 20151125
  Serious: Yes (Other)
  Sender: FDA-Public Use
  Company Number: IT-ELI_LILLY_AND_COMPANY-IT201507009080

PATIENT
  Age: 66 Year
  Sex: Female

DRUGS (2)
  1. CONCOR [Concomitant]
     Active Substance: BISOPROLOL FUMARATE
     Indication: PRODUCT USED FOR UNKNOWN INDICATION
     Dosage: 10 MG, UNKNOWN
     Route: 048
  2. OLANZAPINE. [Suspect]
     Active Substance: OLANZAPINE
     Indication: PRODUCT USED FOR UNKNOWN INDICATION
     Dosage: 5 MG, SINGLE
     Route: 048
     Dates: start: 20150721, end: 20150721

REACTIONS (5)
  - Wrong patient received medication [Recovered/Resolved]
  - Hypotension [Recovered/Resolved]
  - Hypersomnia [Recovered/Resolved]
  - Accidental exposure to product [Recovered/Resolved]
  - Lethargy [Recovered/Resolved]

NARRATIVE: CASE EVENT DATE: 20150721
